FAERS Safety Report 10785880 (Version 1)
Quarter: 2015Q1

REPORT INFORMATION
  Report Type: Spontaneous
  Country: US (occurrence: None)
  Receive Date: 20150210
  Receipt Date: 20150210
  Transmission Date: 20150721
  Serious: Yes (Hospitalization)
  Sender: FDA-Public Use
  Company Number: None

PATIENT
  Age: 46 Year
  Sex: Male
  Weight: 97.07 kg

DRUGS (5)
  1. DEPAKOTE [Suspect]
     Active Substance: DIVALPROEX SODIUM
     Indication: MOOD ALTERED
     Dosage: 3 TABLETS
     Route: 048
     Dates: start: 20141105, end: 20141112
  2. RISPERDAL CONSTA [Concomitant]
     Active Substance: RISPERIDONE
  3. MVI+MINERALS [Concomitant]
  4. RISPERIDONE. [Concomitant]
     Active Substance: RISPERIDONE
  5. NICOTINE TRANSDERMAL SYSTEM [Concomitant]
     Active Substance: NICOTINE

REACTIONS (1)
  - Platelet count decreased [None]

NARRATIVE: CASE EVENT DATE: 20141112
